FAERS Safety Report 26118212 (Version 3)
Quarter: 2025Q4

REPORT INFORMATION
  Report Type: Spontaneous
  Country: GB (occurrence: GB)
  Receive Date: 20251203
  Receipt Date: 20251219
  Transmission Date: 20260118
  Serious: Yes (Other)
  Sender: PFIZER
  Company Number: GB-MLMSERVICE-20251119-PI713974-00138-1

PATIENT
  Age: 47 Year
  Sex: Female

DRUGS (3)
  1. ESTRADIOL [Suspect]
     Active Substance: ESTRADIOL
     Indication: Menopausal symptoms
     Dosage: 50 UG, 2X/WEEK
     Route: 062
     Dates: start: 2025
  2. ESTRADIOL [Suspect]
     Active Substance: ESTRADIOL
     Dosage: 75 UG, 2X/WEEK, DOSE WAS INCREASED
     Route: 062
     Dates: start: 20250519
  3. ESTRADIOL [Suspect]
     Active Substance: ESTRADIOL
     Dosage: 50 UG, 2X/WEEK
     Route: 062
     Dates: start: 2025

REACTIONS (4)
  - Primary headache associated with sexual activity [Recovered/Resolved]
  - Libido increased [Recovered/Resolved]
  - Fatigue [Recovered/Resolved]
  - Nausea [Recovered/Resolved]

NARRATIVE: CASE EVENT DATE: 20250601
